FAERS Safety Report 5042349-8 (Version None)
Quarter: 2006Q3

REPORT INFORMATION
  Report Type: 
  Country: None (occurrence: None)
  Receive Date: 20060705
  Receipt Date: 20060626
  Transmission Date: 20061208
  Serious: Yes (Hospitalization)
  Sender: FDA-Public Use
  Company Number: PHRM2006FR01900

PATIENT
  Age: 84 Year
  Sex: Female

DRUGS (6)
  1. COTAREG [Suspect]
     Indication: ESSENTIAL HYPERTENSION
     Route: 048
     Dates: start: 20050915
  2. SOTALOL HCL [Suspect]
     Indication: ESSENTIAL HYPERTENSION
     Dosage: 80 MG, QD
     Route: 048
     Dates: start: 20050915
  3. MIANSERIN [Concomitant]
     Indication: DEPRESSION
     Dosage: 60 MG/DAY
     Route: 048
  4. AERIUS [Concomitant]
     Route: 048
  5. NOCTRAN 10 [Concomitant]
     Indication: SLEEP DISORDER
     Route: 048
  6. LAROXYL [Concomitant]
     Indication: ANXIETY
     Route: 048

REACTIONS (1)
  - PSORIASIS [None]
